FAERS Safety Report 7505327 (Version 1)
Quarter: 2020Q3

REPORT INFORMATION
  Report Type: Report from Study
  Country: JP (occurrence: JP)
  Receive Date: 20100728
  Receipt Date: 20100728
  Transmission Date: 20201104
  Serious: Yes (Hospitalization)
  Sender: FDA-Public Use
  Company Number: JP-WYE-H15980610

PATIENT
  Age: 72 Year
  Sex: Male
  Weight: 72.1 kg

DRUGS (14)
  1. INOTUZUMAB OZOGAMICIN [Suspect]
     Active Substance: INOTUZUMAB OZOGAMICIN
     Indication: NON-HODGKIN^S LYMPHOMA
     Dosage: 0.8 MG/M^2
     Route: 042
     Dates: start: 20100624, end: 20100624
  2. RITUXIMAB. [Suspect]
     Active Substance: RITUXIMAB
     Indication: NON-HODGKIN^S LYMPHOMA
     Dosage: NOT PROVIDED
     Route: 042
     Dates: start: 20100623, end: 20100623
  3. VINCRISTINE SULFATE. [Suspect]
     Active Substance: VINCRISTINE SULFATE
     Dosage: NOT PROVIDED
     Route: 042
     Dates: start: 20100714, end: 20100714
  4. PREDNISONE. [Suspect]
     Active Substance: PREDNISONE
     Dosage: NOT PROVIDED
     Route: 048
     Dates: start: 20100714
  5. ATORVASTATIN [Concomitant]
     Active Substance: ATORVASTATIN
     Indication: LIPID METABOLISM DISORDER
     Dosage: NOT PROVIDED
     Route: 065
     Dates: start: 2007
  6. CYCLOPHOSPHAMIDE. [Suspect]
     Active Substance: CYCLOPHOSPHAMIDE
     Dosage: NOT PROVIDED
     Route: 042
     Dates: start: 20100714, end: 20100714
  7. CYCLOPHOSPHAMIDE. [Suspect]
     Active Substance: CYCLOPHOSPHAMIDE
     Indication: NON-HODGKIN^S LYMPHOMA
     Dosage: NOT PROVIDED
     Route: 042
     Dates: start: 20100623, end: 20100623
  8. INOTUZUMAB OZOGAMICIN [Suspect]
     Active Substance: INOTUZUMAB OZOGAMICIN
     Dosage: NOT PROVIDED
     Route: 042
     Dates: start: 20100715, end: 20100715
  9. AMLODIPINE BESYLATE. [Concomitant]
     Active Substance: AMLODIPINE BESYLATE
     Indication: HYPERTENSION
     Dosage: NOT PROVIDED
     Route: 065
     Dates: start: 20080724
  10. VINCRISTINE SULFATE. [Suspect]
     Active Substance: VINCRISTINE SULFATE
     Indication: NON-HODGKIN^S LYMPHOMA
     Dosage: NOT PROVIDED
     Route: 042
     Dates: start: 20100623, end: 20100623
  11. KETOCONAZOLE. [Concomitant]
     Active Substance: KETOCONAZOLE
     Indication: TINEA INFECTION
     Dosage: NOT PROVIDED
     Route: 065
     Dates: start: 2000
  12. PREDNISONE. [Suspect]
     Active Substance: PREDNISONE
     Indication: NON-HODGKIN^S LYMPHOMA
     Dosage: NOT PROVIDED
     Route: 048
     Dates: start: 20100623
  13. RITUXIMAB. [Suspect]
     Active Substance: RITUXIMAB
     Dosage: NOT PROVIDED
     Route: 042
     Dates: start: 20100714, end: 20100714
  14. OXICONAZOLE [Concomitant]
     Active Substance: OXICONAZOLE
     Indication: TINEA INFECTION
     Dosage: NOT PROVIDED
     Route: 065
     Dates: start: 2000

REACTIONS (1)
  - Pyrexia [Recovered/Resolved]

NARRATIVE: CASE EVENT DATE: 20100702
